FAERS Safety Report 9931837 (Version 1)
Quarter: 2014Q1

REPORT INFORMATION
  Report Type: Spontaneous
  Country: US (occurrence: None)
  Receive Date: 20140227
  Receipt Date: 20140227
  Transmission Date: 20141002
  Serious: Yes (Other)
  Sender: FDA-Public Use
  Company Number: None

PATIENT
  Age: 39 Year
  Sex: Female
  Weight: 99.79 kg

DRUGS (1)
  1. D-AMPHETAMINE SALT COMBO [Suspect]
     Indication: ATTENTION DEFICIT/HYPERACTIVITY DISORDER
     Route: 048

REACTIONS (7)
  - Insomnia [None]
  - Mood swings [None]
  - Blood glucose decreased [None]
  - Irritability [None]
  - Anxiety [None]
  - Product substitution issue [None]
  - Therapeutic response unexpected with drug substitution [None]
